FAERS Safety Report 7452253-3 (Version None)
Quarter: 2011Q2

REPORT INFORMATION
  Report Type: 
  Country: None (occurrence: None)
  Receive Date: 20110425
  Receipt Date: 20110419
  Transmission Date: 20111010
  Serious: Yes (Life-Threatening, Hospitalization, Other)
  Sender: FDA-Public Use
  Company Number: 2011SP017608

PATIENT
  Age: 90 Year
  Sex: Female
  Weight: 40 kg

DRUGS (2)
  1. CITALOPRAM HYDROBROMIDE [Suspect]
     Indication: PRODUCT USED FOR UNKNOWN INDICATION
     Dosage: 20 MG;QD;PO
     Route: 048
     Dates: start: 20090801, end: 20101220
  2. REMERON [Suspect]
     Indication: PRODUCT USED FOR UNKNOWN INDICATION
     Dosage: 15 MG;QD;PO
     Route: 048
     Dates: start: 20101017, end: 20101018

REACTIONS (4)
  - LOSS OF CONSCIOUSNESS [None]
  - ELECTROCARDIOGRAM QT PROLONGED [None]
  - RENAL FAILURE ACUTE [None]
  - CONVULSION [None]
